FAERS Safety Report 6286286-X (Version None)
Quarter: 2009Q3

REPORT INFORMATION
  Report Type: 
  Country: None (occurrence: None)
  Receive Date: 20090728
  Receipt Date: 20090715
  Transmission Date: 20100115
  Serious: Yes (Hospitalization)
  Sender: FDA-Public Use
  Company Number: FR-PFIZER INC-2009240369

PATIENT
  Age: 60 Year

DRUGS (17)
  1. SOLU-MEDROL [Suspect]
     Dosage: 1 DF, 1X/DAY
     Route: 042
     Dates: start: 20090206, end: 20090212
  2. MOPRAL [Suspect]
     Dosage: 20 MG, 1X/DAY
     Dates: start: 20090206
  3. ARANESP [Suspect]
     Dosage: UNK
     Route: 058
     Dates: start: 20090207
  4. HUMALOG [Suspect]
     Dosage: UNK
     Route: 058
     Dates: start: 20090207
  5. BACTRIM [Suspect]
     Dosage: 0.5 DF, EVERY 3 WEEKS
     Route: 048
     Dates: start: 20090107
  6. DEROXAT [Suspect]
     Dosage: UNK
     Route: 048
     Dates: start: 20090116
  7. MAGNE-B6 [Concomitant]
     Dosage: UNK
     Route: 048
     Dates: start: 20090128
  8. NEBIVOLOL [Concomitant]
     Dosage: UNK
     Dates: end: 20090202
  9. IMUREL [Concomitant]
     Dosage: 50 MG, 2X/DAY
     Route: 042
  10. IMODIUM [Concomitant]
     Dosage: 2 MG, 2X/DAY
     Dates: end: 20090204
  11. NEXIUM [Concomitant]
     Dosage: UNK
     Route: 042
     Dates: end: 20090201
  12. NEORAL [Concomitant]
     Dosage: 125 MG, 2X/DAY
     Route: 042
  13. SOLUPRED [Concomitant]
     Dosage: UNK
     Route: 042
  14. SPECIAFOLDINE [Concomitant]
     Dosage: UNK
     Dates: end: 20090131
  15. DIFFU K [Concomitant]
     Dosage: UNK
     Dates: start: 20090107
  16. PRIMPERAN [Concomitant]
     Dosage: UNK
     Dates: start: 20090110, end: 20090207
  17. UN-ALFA [Concomitant]
     Dosage: UNK
     Dates: start: 20090115

REACTIONS (1)
  - HEPATITIS [None]
